FAERS Safety Report 5115833-6 (Version None)
Quarter: 2006Q3

REPORT INFORMATION
  Report Type: 
  Country: None (occurrence: None)
  Receive Date: 20060925
  Receipt Date: 20060911
  Transmission Date: 20061208
  Serious: Yes (Hospitalization)
  Sender: FDA-Public Use
  Company Number: 229769

PATIENT
  Age: 54 Year
  Sex: Female

DRUGS (2)
  1. HERCEPTIN [Suspect]
     Indication: BREAST CANCER
     Dates: start: 20060101
  2. ARIMIDEX [Concomitant]

REACTIONS (7)
  - ARTHRALGIA [None]
  - COLITIS ISCHAEMIC [None]
  - DIVERTICULITIS [None]
  - DIVERTICULUM [None]
  - MYALGIA [None]
  - PAIN [None]
  - SYNCOPE [None]
